FAERS Safety Report 15538551 (Version 2)
Quarter: 2018Q4

REPORT INFORMATION
  Report Type: Report from Study
  Country: IL (occurrence: IL)
  Receive Date: 20181022
  Receipt Date: 20181126
  Transmission Date: 20190205
  Serious: Yes (Other)
  Sender: FDA-Public Use
  Company Number: IL-INCYTE CORPORATION-2018IN010645

PATIENT

DRUGS (2)
  1. JAKAVI [Suspect]
     Active Substance: RUXOLITINIB
     Dosage: 10 MG FOR 4 DAYS A WEEK AND 20 MG FOR 3 DAYS A WEEK
     Route: 048
  2. JAKAVI [Suspect]
     Active Substance: RUXOLITINIB
     Indication: MYELOFIBROSIS
     Dosage: 10 MG, BID
     Route: 048
     Dates: start: 20160310

REACTIONS (6)
  - Skin lesion [Unknown]
  - Blood creatinine increased [Recovering/Resolving]
  - Thrombocytopenia [Not Recovered/Not Resolved]
  - Basal cell carcinoma [Recovered/Resolved]
  - Haemoglobin decreased [Not Recovered/Not Resolved]
  - Second primary malignancy [Recovered/Resolved]
